FAERS Safety Report 7033935-4 (Version None)
Quarter: 2010Q4

REPORT INFORMATION
  Report Type: 
  Country: None (occurrence: None)
  Receive Date: 20101005
  Receipt Date: 20100923
  Transmission Date: 20110411
  Serious: Yes (Hospitalization)
  Sender: FDA-Public Use
  Company Number: 007710

PATIENT
  Sex: Female

DRUGS (2)
  1. CERTOLIZUMAB PEGOL (CERTOLIZUMAB PEGOL) [Suspect]
     Indication: RHEUMATOID ARTHRITIS
     Dosage: (400 MG 1X/MONTH, 870-IFL-01587-014 SUBCUTANEOUS) ; (400 MG 1X/MONTH SUBCUTANEOUS)
     Route: 058
     Dates: start: 20030314, end: 20030801
  2. CERTOLIZUMAB PEGOL (CERTOLIZUMAB PEGOL) [Suspect]
     Indication: RHEUMATOID ARTHRITIS
     Dosage: (400 MG 1X/MONTH, 870-IFL-01587-014 SUBCUTANEOUS) ; (400 MG 1X/MONTH SUBCUTANEOUS)
     Route: 058
     Dates: start: 20030829, end: 20100305

REACTIONS (14)
  - ABSCESS INTESTINAL [None]
  - ARTHRITIS INFECTIVE [None]
  - CHEST PAIN [None]
  - DIVERTICULITIS [None]
  - DIVERTICULUM [None]
  - ECZEMA [None]
  - ERYTHEMA [None]
  - GASTROINTESTINAL HAEMORRHAGE [None]
  - HAEMOPTYSIS [None]
  - HIATUS HERNIA [None]
  - INFECTED SKIN ULCER [None]
  - OSTEOARTHRITIS [None]
  - VAGINAL FISTULA [None]
  - WOUND [None]
